FAERS Safety Report 15881603 (Version 6)
Quarter: 2020Q1

REPORT INFORMATION
  Report Type: Spontaneous
  Country: US (occurrence: US)
  Receive Date: 20190128
  Receipt Date: 20200228
  Transmission Date: 20200409
  Serious: Yes (Other)
  Sender: FDA-Public Use
  Company Number: US-SA-2019SA019574

PATIENT
  Age: 72 Year
  Sex: Female

DRUGS (5)
  1. DUPIXENT [Suspect]
     Active Substance: DUPILUMAB
     Dosage: 300 MG, 1X
     Route: 058
     Dates: start: 201901, end: 201901
  2. DUPIXENT [Suspect]
     Active Substance: DUPILUMAB
     Indication: DERMATITIS ATOPIC
     Dosage: 600 MG, 1X
     Dates: start: 20190103, end: 20190103
  3. ANASTROZOLE. [Concomitant]
     Active Substance: ANASTROZOLE
  4. TAMOXIFEN [Concomitant]
     Active Substance: TAMOXIFEN
  5. AMLODIPINE [Concomitant]
     Active Substance: AMLODIPINE BESYLATE

REACTIONS (12)
  - Head discomfort [Recovering/Resolving]
  - Headache [Unknown]
  - Stevens-Johnson syndrome [Recovering/Resolving]
  - Pain [Recovering/Resolving]
  - Lip swelling [Not Recovered/Not Resolved]
  - Cardiac discomfort [Recovering/Resolving]
  - Erythema [Recovering/Resolving]
  - Rash [Recovering/Resolving]
  - Thermal burn [Recovering/Resolving]
  - Chest pain [Unknown]
  - Skin exfoliation [Recovering/Resolving]
  - Chapped lips [Not Recovered/Not Resolved]

NARRATIVE: CASE EVENT DATE: 2019
